FAERS Safety Report 8790425 (Version 1)
Quarter: 2012Q4

REPORT INFORMATION
  Report Type: Spontaneous
  Country: US (occurrence: None)
  Receive Date: 20120911
  Receipt Date: 20120911
  Transmission Date: 20130627
  Serious: Yes (Hospitalization)
  Sender: FDA-Public Use
  Company Number: None

PATIENT
  Age: 59 Year
  Sex: Female
  Weight: 118.5 kg

DRUGS (2)
  1. PROMETHAZINE [Suspect]
     Indication: NAUSEA
     Dosage: from 8/24 to 8/27
     Route: 040
  2. PROMETHAZINE [Suspect]
     Indication: VOMITING
     Dosage: from 8/24 to 8/27
     Route: 040

REACTIONS (2)
  - Infusion site phlebitis [None]
  - Infusion site necrosis [None]
